FAERS Safety Report 13182980 (Version 1)
Quarter: 2017Q1

REPORT INFORMATION
  Report Type: Spontaneous
  Country: US (occurrence: US)
  Receive Date: 20170202
  Receipt Date: 20170202
  Transmission Date: 20170428
  Serious: Yes (Hospitalization)
  Sender: FDA-Public Use
  Company Number: None

PATIENT
  Age: 40 Year
  Sex: Male

DRUGS (7)
  1. CLONIDINE HYDROCHLORIDE. [Concomitant]
     Active Substance: CLONIDINE HYDROCHLORIDE
  2. GLIPIZIDE. [Concomitant]
     Active Substance: GLIPIZIDE
  3. ENALAPRIL [Concomitant]
     Active Substance: ENALAPRIL
  4. RANIBIZUMAB 0.3 MG GENENTECH [Suspect]
     Active Substance: RANIBIZUMAB
     Indication: DIABETIC RETINAL OEDEMA
  5. CYCLOBENAPRINE HCL [Concomitant]
  6. METFORMIN [Concomitant]
     Active Substance: METFORMIN HYDROCHLORIDE
  7. ACETAMINOPEHN/HYDROCODONE [Concomitant]

REACTIONS (4)
  - Nausea [None]
  - Gallbladder enlargement [None]
  - Blood bilirubin increased [None]
  - Vomiting [None]

NARRATIVE: CASE EVENT DATE: 20160926
